FAERS Safety Report 20087709 (Version 1)
Quarter: 2021Q4

REPORT INFORMATION
  Report Type: Other
  Country: GB (occurrence: GB)
  Receive Date: 20211118
  Receipt Date: 20211118
  Transmission Date: 20220303
  Serious: Yes (Other)
  Sender: FDA-Public Use
  Company Number: None

PATIENT

DRUGS (2)
  1. OMNIPAQUE [Suspect]
     Active Substance: IOHEXOL
     Indication: Scan with contrast
     Dosage: 70 ML, SINGLE
     Route: 042
     Dates: start: 20211111, end: 20211111
  2. OMNIPAQUE [Suspect]
     Active Substance: IOHEXOL
     Indication: Product used for unknown indication

REACTIONS (6)
  - Sneezing [Recovering/Resolving]
  - Pruritus [Recovering/Resolving]
  - Oral pruritus [Recovering/Resolving]
  - Chest discomfort [Recovering/Resolving]
  - Lip swelling [Recovering/Resolving]
  - Paraesthesia oral [Recovering/Resolving]

NARRATIVE: CASE EVENT DATE: 20211111
